FAERS Safety Report 7788838-4 (Version None)
Quarter: 2011Q3

REPORT INFORMATION
  Report Type: 
  Country: None (occurrence: None)
  Receive Date: 20110928
  Receipt Date: 20110915
  Transmission Date: 20111222
  Serious: Yes (Hospitalization)
  Sender: FDA-Public Use
  Company Number: DSJ-2011-20325

PATIENT
  Sex: Female

DRUGS (2)
  1. BENICAR [Suspect]
     Indication: HYPERTENSION
     Dosage: 20 MG (20 MG,1 IN 1 D),PER ORAL : 40 MG (40 MG,1 IN 1 D), PER ORAL
     Route: 048
     Dates: start: 20080101, end: 20110913
  2. BENICAR [Suspect]
     Indication: HYPERTENSION
     Dosage: 20 MG (20 MG,1 IN 1 D),PER ORAL : 40 MG (40 MG,1 IN 1 D), PER ORAL
     Route: 048
     Dates: start: 20110914

REACTIONS (1)
  - INFARCTION [None]
